FAERS Safety Report 4771532-1 (Version None)
Quarter: 2005Q3

REPORT INFORMATION
  Report Type: 
  Country: None (occurrence: None)
  Receive Date: 20050916
  Receipt Date: 20050706
  Transmission Date: 20060218
  Serious: Yes (Death, Other)
  Sender: FDA-Public Use
  Company Number: HK-ABBOTT-05P-075-0305499-00

PATIENT
  Age: 87 Year
  Sex: Female

DRUGS (9)
  1. CLARITHROMYCIN [Suspect]
     Indication: PNEUMONIA
     Route: 048
     Dates: start: 19991126, end: 19991129
  2. COLCHICINE [Interacting]
     Indication: GOUT
     Route: 048
     Dates: start: 19991126, end: 19991129
  3. AMOXICILLIN [Concomitant]
     Indication: PNEUMONIA
     Dates: start: 19991122, end: 19991128
  4. ASPIRIN [Concomitant]
     Indication: MYOCARDIAL ISCHAEMIA
     Dates: start: 19991122, end: 19991220
  5. ADALAT [Concomitant]
     Indication: HYPERTENSION
     Dates: start: 19991122, end: 19991220
  6. CELECOXIB [Concomitant]
     Indication: ARTHRALGIA
     Dates: start: 19991126, end: 19991130
  7. PREDNISOLONE [Concomitant]
     Indication: CHRONIC OBSTRUCTIVE PULMONARY DISEASE
     Dates: start: 19991126, end: 19991201
  8. VENTOLIN NEBULISER [Concomitant]
     Indication: CHRONIC OBSTRUCTIVE PULMONARY DISEASE
     Route: 055
     Dates: start: 19991122, end: 19991212
  9. THEO-DUR [Concomitant]
     Indication: CHRONIC OBSTRUCTIVE PULMONARY DISEASE
     Dates: start: 19991122, end: 19991128

REACTIONS (6)
  - DIARRHOEA [None]
  - DRUG INTERACTION [None]
  - DRUG TOXICITY [None]
  - DYSPNOEA [None]
  - FLUID RETENTION [None]
  - GOUT [None]
